FAERS Safety Report 4428966-4 (Version None)
Quarter: 2004Q3

REPORT INFORMATION
  Report Type: 
  Country: None (occurrence: None)
  Receive Date: 20040818
  Receipt Date: 20040615
  Transmission Date: 20050211
  Serious: No
  Sender: FDA-Public Use
  Company Number: US-GLAXOSMITHKLINE-A0517215A

PATIENT
  Age: 50 Year
  Sex: Female
  Weight: 49.1 kg

DRUGS (4)
  1. LOTRONEX [Suspect]
     Dosage: 1MG TWICE PER DAY
     Dates: start: 20001108
  2. PREVACID [Concomitant]
  3. MUCOFEN [Concomitant]
  4. AMOXIL [Concomitant]

REACTIONS (1)
  - ADVERSE EVENT [None]
